FAERS Safety Report 17121845 (Version 2)
Quarter: 2024Q1

REPORT INFORMATION
  Report Type: Spontaneous
  Country: ES (occurrence: ES)
  Receive Date: 20191206
  Receipt Date: 20240130
  Transmission Date: 20240410
  Serious: Yes (Hospitalization, Other)
  Sender: FDA-Public Use
  Company Number: None

PATIENT
  Age: 17 Month
  Sex: Female
  Weight: 12.1 kg

DRUGS (2)
  1. LORMETAZEPAM [Suspect]
     Active Substance: LORMETAZEPAM
     Indication: Product used for unknown indication
     Dosage: 0.5 DOSAGE FORM, TOTAL  0.5 DOSAGE FORM, TOTAL  HALF A TABLET OF LORMETAZEPAM (1 MG)
     Route: 048
  2. QUETIAPINE [Suspect]
     Active Substance: QUETIAPINE
     Indication: Product used for unknown indication
     Dosage: 2 DOSAGE FORM, TOTAL
     Route: 048

REACTIONS (9)
  - Somnolence [Recovered/Resolved]
  - Accidental overdose [Recovered/Resolved]
  - Accidental exposure to product by child [Recovered/Resolved]
  - Thrombocytopenia [Recovered/Resolved]
  - Urinary retention [Recovered/Resolved]
  - Neutropenia [Recovered/Resolved]
  - Miosis [Recovered/Resolved]
  - Accidental poisoning [Recovered/Resolved]
  - Depressed level of consciousness [Recovered/Resolved]
